FAERS Safety Report 13790539 (Version 1)
Quarter: 2017Q3

REPORT INFORMATION
  Report Type: Spontaneous
  Country: BE (occurrence: BE)
  Receive Date: 20170725
  Receipt Date: 20170725
  Transmission Date: 20171127
  Serious: Yes (Hospitalization, Other)
  Sender: FDA-Public Use
  Company Number: BE-AUROBINDO-AUR-APL-2009-00455

PATIENT

DRUGS (11)
  1. CYTARABINE. [Suspect]
     Active Substance: CYTARABINE
     Dosage: UNK UNK,DAILY,
     Route: 042
     Dates: start: 20080723, end: 20080726
  2. METHYLPREDNISOLONE. [Suspect]
     Active Substance: METHYLPREDNISOLONE
     Indication: PRODUCT USED FOR UNKNOWN INDICATION
     Dosage: UNK UNK,UNK,UNKNOWN
     Route: 037
     Dates: start: 20080716
  3. ONDANSETRON FILM COATED TABLETS 4 MG [Suspect]
     Active Substance: ONDANSETRON
     Indication: PRODUCT USED FOR UNKNOWN INDICATION
     Dosage: UNK UNK,TWO TIMES A DAY,,MAXIMUM 8 MG
     Route: 065
     Dates: start: 20080714
  4. OMEPRAZOLE. [Suspect]
     Active Substance: OMEPRAZOLE
     Indication: PRODUCT USED FOR UNKNOWN INDICATION
     Dosage: UNK UNK,ONCE A DAY,
     Route: 048
     Dates: start: 20080307
  5. COTRIMOXAZOLE [Suspect]
     Active Substance: SULFAMETHOXAZOLE\TRIMETHOPRIM
     Indication: PRODUCT USED FOR UNKNOWN INDICATION
     Dosage: UNK UNK,TWO TIMES A DAY,
     Route: 048
     Dates: start: 20080603
  6. CYTARABINE. [Suspect]
     Active Substance: CYTARABINE
     Dosage: UNK UNK,UNK,
     Route: 037
     Dates: start: 20080716
  7. CYCLOPHOSPHAMIDE. [Suspect]
     Active Substance: CYCLOPHOSPHAMIDE
     Indication: PRODUCT USED FOR UNKNOWN INDICATION
     Dosage: UNK UNK,UNK,UNKNOWN
     Route: 042
     Dates: start: 20080714
  8. CYTARABINE. [Suspect]
     Active Substance: CYTARABINE
     Indication: PRODUCT USED FOR UNKNOWN INDICATION
     Dosage: UNK UNK,DAILY,
     Route: 042
     Dates: start: 20080716, end: 20080719
  9. METHOTREXATE ACTAVIS SOLUTION FOR INJECTION/INFUSION [Suspect]
     Active Substance: METHOTREXATE
     Indication: PRODUCT USED FOR UNKNOWN INDICATION
     Dosage: 12 MG, UNK
     Route: 037
     Dates: start: 20080716
  10. THIOGUANINE [Concomitant]
     Active Substance: THIOGUANINE
     Indication: PRODUCT USED FOR UNKNOWN INDICATION
     Dosage: UNK UNK,UNK,UNKNOWN
     Route: 048
     Dates: start: 20080714, end: 20080728
  11. MESNA. [Concomitant]
     Active Substance: MESNA
     Indication: PRODUCT USED FOR UNKNOWN INDICATION
     Dosage: UNK UNK,UNK,UNKNOWN
     Route: 042
     Dates: start: 20080714

REACTIONS (4)
  - Dysarthria [Recovered/Resolved]
  - Stomatitis [Unknown]
  - Facial paralysis [Recovered/Resolved]
  - Hemiparesis [Recovered/Resolved]

NARRATIVE: CASE EVENT DATE: 20080727
